FAERS Safety Report 7830320-X (Version None)
Quarter: 2011Q4

REPORT INFORMATION
  Report Type: 
  Country: None (occurrence: None)
  Receive Date: 20111021
  Receipt Date: 20111012
  Transmission Date: 20120403
  Serious: Yes (Hospitalization, Other)
  Sender: FDA-Public Use
  Company Number: US-CELGENEUS-163-21880-11083456

PATIENT
  Sex: Female
  Weight: 70.37 kg

DRUGS (22)
  1. REVLIMID [Suspect]
     Dosage: 5 MILLIGRAM
     Route: 048
     Dates: start: 20110825
  2. AMLODIPINE [Concomitant]
     Dosage: 7.5 MILLIGRAM
     Route: 048
  3. ASPIRIN [Concomitant]
     Route: 065
  4. DULCOLAX [Concomitant]
     Route: 065
  5. MILK OF MAGNESIA TAB [Concomitant]
     Route: 065
  6. TYLENOL-500 [Concomitant]
     Route: 048
  7. TOPROL-XL [Concomitant]
     Route: 065
  8. COLACE [Concomitant]
     Route: 065
  9. METOPROLOL TARTRATE [Concomitant]
     Dosage: 50 MILLIGRAM
     Route: 048
  10. PRILOSEC [Concomitant]
     Route: 065
  11. MULTI-VITAMINS [Concomitant]
     Dosage: 1 CAPSULE
     Route: 048
  12. PREDNISONE [Concomitant]
     Dosage: 20 MILLIGRAM
     Route: 048
  13. SENOKOT [Concomitant]
     Route: 065
  14. OMEPRAZOLE [Concomitant]
     Route: 065
  15. DANAZOL [Concomitant]
     Dosage: 200 MILLIGRAM
     Route: 048
  16. ARANESP [Concomitant]
     Dosage: 500 MCG/ML
     Route: 065
  17. CEPHALEXIN [Concomitant]
     Dosage: 500 MILLIGRAM
     Route: 048
  18. REVLIMID [Suspect]
     Dosage: 5 MILLIGRAM
     Route: 048
     Dates: start: 20100415, end: 20110801
  19. LASIX [Concomitant]
     Dosage: 40 MILLIGRAM
     Route: 048
  20. TRAMADOL HCL [Concomitant]
     Indication: PAIN
     Dosage: 50 MILLIGRAM
     Route: 048
  21. LEVOTHYROXINE SODIUM [Concomitant]
     Dosage: 25 MICROGRAM
     Route: 048
  22. QUININE [Concomitant]
     Route: 065

REACTIONS (4)
  - INJURY [None]
  - MUSCLE SPASMS [None]
  - LIGAMENT SPRAIN [None]
  - CONTUSION [None]
